FAERS Safety Report 13111508 (Version 1)
Quarter: 2017Q1

REPORT INFORMATION
  Report Type: Spontaneous
  Country: FR (occurrence: FR)
  Receive Date: 20170112
  Receipt Date: 20170112
  Transmission Date: 20170428
  Serious: Yes (Hospitalization)
  Sender: FDA-Public Use
  Company Number: FR-ASTRAZENECA-2017SE02739

PATIENT
  Age: 83 Year
  Sex: Male

DRUGS (5)
  1. LASILIX [Suspect]
     Active Substance: FUROSEMIDE
     Indication: HYPERTENSION
     Route: 048
  2. LOXEN SR [Suspect]
     Active Substance: NICARDIPINE HYDROCHLORIDE
     Indication: HYPERTENSION
     Route: 048
  3. PANTOPRAZOLE [Suspect]
     Active Substance: PANTOPRAZOLE SODIUM
     Indication: GASTRIC ULCER HAEMORRHAGE
     Route: 048
  4. COUMADINE [Concomitant]
     Active Substance: WARFARIN SODIUM
  5. ATACAND [Suspect]
     Active Substance: CANDESARTAN CILEXETIL
     Indication: HYPERTENSION
     Route: 048

REACTIONS (3)
  - Sleep disorder due to general medical condition, insomnia type [Unknown]
  - Eczema [Recovering/Resolving]
  - Toxic skin eruption [Unknown]

NARRATIVE: CASE EVENT DATE: 201611
